FAERS Safety Report 11451793 (Version 1)
Quarter: 2015Q3

REPORT INFORMATION
  Report Type: Report from Study
  Country: GB (occurrence: GB)
  Receive Date: 20150903
  Receipt Date: 20150903
  Transmission Date: 20151125
  Serious: Yes (Other)
  Sender: FDA-Public Use
  Company Number: GB-JNJFOC-20150901011

PATIENT
  Sex: Female

DRUGS (2)
  1. FLECAINIDE [Concomitant]
     Active Substance: FLECAINIDE
     Route: 065
  2. XARELTO [Suspect]
     Active Substance: RIVAROXABAN
     Indication: PRODUCT USED FOR UNKNOWN INDICATION
     Route: 048

REACTIONS (5)
  - Fatigue [Unknown]
  - Cardiac discomfort [Unknown]
  - Cough [Unknown]
  - Dizziness [Unknown]
  - Dyspnoea [Unknown]
